FAERS Safety Report 19209389 (Version 1)
Quarter: 2021Q2

REPORT INFORMATION
  Report Type: Other
  Country: CA (occurrence: CA)
  Receive Date: 20210504
  Receipt Date: 20210504
  Transmission Date: 20210717
  Serious: Yes (Life-Threatening, Hospitalization, Other)
  Sender: FDA-Public Use
  Company Number: CA-APOTEX-2021AP010468

PATIENT
  Age: 81 Year
  Sex: Female

DRUGS (1)
  1. LETROZOLE. [Suspect]
     Active Substance: LETROZOLE
     Indication: BREAST CANCER
     Dosage: 2.5 MILLIGRAM
     Route: 048

REACTIONS (5)
  - SARS-CoV-2 test negative [Unknown]
  - Angioedema [Unknown]
  - Swollen tongue [Unknown]
  - Stridor [Unknown]
  - Mouth swelling [Unknown]
